FAERS Safety Report 9605088 (Version 2)
Quarter: 2013Q4

REPORT INFORMATION
  Report Type: Spontaneous
  Country: NZ (occurrence: NZ)
  Receive Date: 20131008
  Receipt Date: 20131202
  Transmission Date: 20140711
  Serious: Yes (Other)
  Sender: FDA-Public Use
  Company Number: NZ-ELI_LILLY_AND_COMPANY-NZ201309009476

PATIENT
  Sex: Male

DRUGS (1)
  1. ZYPREXA RELPREVV [Suspect]
     Indication: PRODUCT USED FOR UNKNOWN INDICATION
     Dosage: 300 MG, UNKNOWN
     Route: 030
     Dates: start: 20130617

REACTIONS (4)
  - Balance disorder [Recovered/Resolved]
  - Urinary incontinence [Recovered/Resolved]
  - Sedation [Recovered/Resolved]
  - Wrong technique in drug usage process [Recovered/Resolved]
